FAERS Safety Report 7216007-5 (Version None)
Quarter: 2011Q1

REPORT INFORMATION
  Report Type: 
  Country: None (occurrence: None)
  Receive Date: 20110107
  Receipt Date: 20110103
  Transmission Date: 20110831
  Serious: Yes (Death, Hospitalization)
  Sender: FDA-Public Use
  Company Number: PHHY2010IT89590

PATIENT
  Age: 38 Year
  Sex: Female

DRUGS (3)
  1. EPIRUBICIN [Suspect]
     Indication: BREAST CANCER
     Dosage: 90 MG/M2, UNK
  2. PREDNISONE [Suspect]
     Dosage: UNK
  3. DOCETAXEL [Suspect]
     Indication: BREAST CANCER
     Dosage: 75 MG/M2, UNK

REACTIONS (11)
  - NEUTROPENIA [None]
  - GASTRITIS [None]
  - DEATH [None]
  - NAUSEA [None]
  - ENTEROCOLITIS [None]
  - INFLAMMATION [None]
  - VOMITING [None]
  - MUSCULAR WEAKNESS [None]
  - ABDOMINAL DISTENSION [None]
  - LARGE INTESTINAL ULCER [None]
  - ABDOMINAL PAIN [None]
